FAERS Safety Report 4341062-X (Version None)
Quarter: 2004Q2

REPORT INFORMATION
  Report Type: 
  Country: None (occurrence: None)
  Receive Date: 20040419
  Receipt Date: 20040415
  Transmission Date: 20050107
  Serious: Yes (Other)
  Sender: FDA-Public Use
  Company Number: US-BRISTOL-MYERS SQUIBB COMPANY-12561346

PATIENT
  Age: 73 Year
  Sex: Male

DRUGS (2)
  1. ERBITUX [Suspect]
     Indication: NEOPLASM MALIGNANT
     Dosage: ONE DOSE GIVEN. DOSE = 500 MG, 7 ML GIVEN (5-10 MIN. OF INFUSION).
     Route: 042
     Dates: start: 20040414, end: 20040414
  2. BENADRYL [Concomitant]
     Indication: PREMEDICATION

REACTIONS (5)
  - BLOOD PRESSURE DECREASED [None]
  - CHEST PAIN [None]
  - CHILLS [None]
  - FLUSHING [None]
  - RASH [None]
